FAERS Safety Report 11166554 (Version 2)
Quarter: 2015Q3

REPORT INFORMATION
  Report Type: Spontaneous
  Country: US (occurrence: US)
  Receive Date: 20150605
  Receipt Date: 20150713
  Transmission Date: 20151125
  Serious: Yes (Other)
  Sender: FDA-Public Use
  Company Number: US-JNJFOC-20150512509

PATIENT
  Sex: Male
  Weight: 90.72 kg

DRUGS (2)
  1. RISPERDAL [Suspect]
     Active Substance: RISPERIDONE
     Indication: BIPOLAR DISORDER
     Route: 048
     Dates: end: 2008
  2. RISPERDAL CONSTA [Suspect]
     Active Substance: RISPERIDONE
     Indication: BIPOLAR DISORDER
     Route: 030
     Dates: start: 2008, end: 2013

REACTIONS (10)
  - Blood uric acid increased [Unknown]
  - Skin striae [Not Recovered/Not Resolved]
  - Blood cholesterol increased [Unknown]
  - Apathy [Unknown]
  - Condition aggravated [Unknown]
  - Drug tolerance [Unknown]
  - Weight increased [Not Recovered/Not Resolved]
  - Skin injury [Not Recovered/Not Resolved]
  - Drug effect decreased [Unknown]
  - Hypertension [Unknown]

NARRATIVE: CASE EVENT DATE: 2008
